FAERS Safety Report 9784954 (Version 3)
Quarter: 2014Q1

REPORT INFORMATION
  Report Type: Spontaneous
  Country: US (occurrence: US)
  Receive Date: 20131227
  Receipt Date: 20140301
  Transmission Date: 20141002
  Serious: No
  Sender: FDA-Public Use
  Company Number: US-009507513-1312USA006042

PATIENT
  Age: 40 Year
  Sex: Female
  Weight: 72.11 kg

DRUGS (3)
  1. NEXPLANON [Suspect]
     Indication: CONTRACEPTION
     Dosage: UNK
     Route: 059
     Dates: start: 20130520, end: 20130617
  2. NEXPLANON [Suspect]
     Indication: DYSMENORRHOEA
  3. ZOLOFT [Concomitant]

REACTIONS (5)
  - Impaired healing [Recovered/Resolved]
  - Device expulsion [Recovered/Resolved]
  - Implant site irritation [Recovered/Resolved]
  - Implant site pruritus [Recovered/Resolved]
  - Implant site infection [Recovered/Resolved]
